FAERS Safety Report 5844969-7 (Version None)
Quarter: 2008Q3

REPORT INFORMATION
  Report Type: 
  Country: None (occurrence: None)
  Receive Date: 20080814
  Receipt Date: 20080808
  Transmission Date: 20090109
  Serious: Yes (Hospitalization, Other)
  Sender: FDA-Public Use
  Company Number: US-CELGENEUS-163-21880-08071246

PATIENT
  Age: 60 Year
  Sex: Female
  Weight: 95 kg

DRUGS (2)
  1. REVLIMID [Suspect]
     Indication: MULTIPLE MYELOMA
     Route: 048
     Dates: start: 20050706, end: 20050723
  2. DEXAMETHASONE TAB [Suspect]
     Indication: MULTIPLE MYELOMA
     Route: 048
     Dates: start: 20050706, end: 20050723

REACTIONS (11)
  - ABDOMINAL ABSCESS [None]
  - ADRENAL ADENOMA [None]
  - BACTEROIDES INFECTION [None]
  - CHOLECYSTITIS [None]
  - COLITIS [None]
  - DEEP VEIN THROMBOSIS [None]
  - DIVERTICULITIS [None]
  - ENTEROCUTANEOUS FISTULA [None]
  - LOWER GASTROINTESTINAL HAEMORRHAGE [None]
  - LUNG INFILTRATION [None]
  - PSEUDOMEMBRANOUS COLITIS [None]
